FAERS Safety Report 22064888 (Version 1)
Quarter: 2023Q1

REPORT INFORMATION
  Report Type: Spontaneous
  Country: US (occurrence: US)
  Receive Date: 20230306
  Receipt Date: 20230306
  Transmission Date: 20230418
  Serious: No
  Sender: FDA-Public Use
  Company Number: US-BRISTOL-MYERS SQUIBB COMPANY-2023-031379

PATIENT
  Age: 78 Year
  Sex: Female

DRUGS (1)
  1. REVLIMID [Suspect]
     Active Substance: LENALIDOMIDE
     Indication: Plasma cell myeloma
     Dosage: FREQ: OTHER
     Route: 048
     Dates: start: 202301

REACTIONS (1)
  - Temperature intolerance [Unknown]

NARRATIVE: CASE EVENT DATE: 20230302
